FAERS Safety Report 20514752 (Version 1)
Quarter: 2022Q1

REPORT INFORMATION
  Report Type: Spontaneous
  Country: US (occurrence: US)
  Receive Date: 20220224
  Receipt Date: 20220224
  Transmission Date: 20220423
  Serious: No
  Sender: FDA-Public Use
  Company Number: US-SA-SAC20220218000717

PATIENT
  Sex: Female

DRUGS (18)
  1. AUBAGIO [Suspect]
     Active Substance: TERIFLUNOMIDE
     Indication: Multiple sclerosis
     Route: 048
     Dates: start: 20151112
  2. TRULICITY [Concomitant]
     Active Substance: DULAGLUTIDE
  3. NAPROXEN [Concomitant]
     Active Substance: NAPROXEN
  4. BACTRIM [Concomitant]
     Active Substance: SULFAMETHOXAZOLE\TRIMETHOPRIM
  5. ALPRAZOLAM [Concomitant]
     Active Substance: ALPRAZOLAM
  6. CLINDAMYCIN [Concomitant]
     Active Substance: CLINDAMYCIN
  7. FLUCONAZOLE [Concomitant]
     Active Substance: FLUCONAZOLE
  8. GABAPENTIN [Concomitant]
     Active Substance: GABAPENTIN
  9. ACETAMINOPHEN\HYDROCODONE [Concomitant]
     Active Substance: ACETAMINOPHEN\HYDROCODONE
  10. IBUPROFEN [Concomitant]
     Active Substance: IBUPROFEN
  11. LANTUS [Concomitant]
     Active Substance: INSULIN GLARGINE
  12. LINEZOLID [Concomitant]
     Active Substance: LINEZOLID
  13. METFORMIN [Concomitant]
     Active Substance: METFORMIN HYDROCHLORIDE
  14. REBIF [Concomitant]
     Active Substance: INTERFERON BETA-1A
  15. RIZATRIPTAN [Concomitant]
     Active Substance: RIZATRIPTAN
  16. CIPROL [CIPROFLOXACIN] [Concomitant]
  17. FLUCONAZOLE [Concomitant]
     Active Substance: FLUCONAZOLE
  18. AMOXICILLIN\CLAVULANATE POTASSIUM [Concomitant]
     Active Substance: AMOXICILLIN\CLAVULANATE POTASSIUM

REACTIONS (2)
  - Tremor [Unknown]
  - Product dose omission issue [Unknown]
